FAERS Safety Report 4830106-4 (Version None)
Quarter: 2005Q4

REPORT INFORMATION
  Report Type: 
  Country: None (occurrence: None)
  Receive Date: 20051117
  Receipt Date: 20051011
  Transmission Date: 20060501
  Serious: Yes (Disabling)
  Sender: FDA-Public Use
  Company Number: 2005AC01607

PATIENT
  Age: 25759 Day
  Sex: Male

DRUGS (3)
  1. CRESTOR [Suspect]
     Indication: HYPERCHOLESTEROLAEMIA
     Route: 048
     Dates: start: 20050128, end: 20050607
  2. AMLODIPINUM [Concomitant]
     Route: 048
  3. CAD BRUISGRANULAAT [Concomitant]
     Route: 048
     Dates: start: 20050128

REACTIONS (1)
  - AMYOTROPHIC LATERAL SCLEROSIS [None]
